FAERS Safety Report 22326599 (Version 2)
Quarter: 2023Q2

REPORT INFORMATION
  Report Type: Report from Study
  Country: US (occurrence: US)
  Receive Date: 20230516
  Receipt Date: 20230522
  Transmission Date: 20230721
  Serious: Yes (Hospitalization)
  Sender: FDA-Public Use
  Company Number: US-002147023-NVSC2023US108301

PATIENT
  Sex: Male

DRUGS (1)
  1. ENTRESTO [Suspect]
     Active Substance: SACUBITRIL\VALSARTAN
     Indication: Cardiac failure
     Dosage: 26 MG
     Route: 048
     Dates: start: 202304

REACTIONS (5)
  - Pneumonia [Recovering/Resolving]
  - Respiration abnormal [Unknown]
  - Sputum discoloured [Recovering/Resolving]
  - Diarrhoea [Recovering/Resolving]
  - Underdose [Unknown]
